FAERS Safety Report 16439710 (Version 1)
Quarter: 2019Q2

REPORT INFORMATION
  Report Type: Spontaneous
  Country: JP (occurrence: JP)
  Receive Date: 20190617
  Receipt Date: 20190617
  Transmission Date: 20190711
  Serious: Yes (Other)
  Sender: FDA-Public Use
  Company Number: JP-PFIZER INC-2019179434

PATIENT
  Age: 79 Year
  Sex: Male

DRUGS (2)
  1. LYRICA [Suspect]
     Active Substance: PREGABALIN
     Indication: NEURALGIA
     Dosage: 75, 2X/DAY
     Route: 048
     Dates: start: 20180205, end: 20180311
  2. LYRICA [Suspect]
     Active Substance: PREGABALIN
     Dosage: 150, 2X/DAY
     Dates: start: 20180312, end: 20180513

REACTIONS (7)
  - Therapeutic response decreased [Unknown]
  - Face oedema [Unknown]
  - Skin fissures [Unknown]
  - Paraesthesia [Unknown]
  - Oedema peripheral [Recovered/Resolved]
  - Pruritus [Recovered/Resolved]
  - Scratch [Recovered/Resolved]

NARRATIVE: CASE EVENT DATE: 20180220
